FAERS Safety Report 9116978 (Version 2)
Quarter: 2013Q3

REPORT INFORMATION
  Report Type: Spontaneous
  Country: US (occurrence: US)
  Receive Date: 20130225
  Receipt Date: 20130711
  Transmission Date: 20140515
  Serious: Yes (Hospitalization)
  Sender: FDA-Public Use
  Company Number: US-BAYER-2013-022589

PATIENT
  Age: 25 Year
  Sex: Female
  Weight: 70.3 kg

DRUGS (2)
  1. YASMIN [Suspect]
     Dosage: UNK
     Dates: start: 1995, end: 2001
  2. YAZ [Suspect]
     Dosage: UNK
     Dates: start: 1995, end: 2001

REACTIONS (5)
  - Pulmonary embolism [Not Recovered/Not Resolved]
  - Pain [Not Recovered/Not Resolved]
  - Injury [Not Recovered/Not Resolved]
  - Pain [None]
  - Fear of disease [None]
